FAERS Safety Report 6079694-3 (Version None)
Quarter: 2009Q1

REPORT INFORMATION
  Report Type: 
  Country: None (occurrence: None)
  Receive Date: 20090217
  Receipt Date: 20090205
  Transmission Date: 20090719
  Serious: Yes (Hospitalization)
  Sender: FDA-Public Use
  Company Number: PHHO2007MX16479

PATIENT
  Age: 1 Year
  Sex: Male

DRUGS (1)
  1. TRILEPTAL [Suspect]
     Dosage: 60 MG/ML, BID
     Route: 048
     Dates: start: 20070914, end: 20070923

REACTIONS (2)
  - BRAIN MALFORMATION [None]
  - CONVULSION [None]
